FAERS Safety Report 10953308 (Version 1)
Quarter: 2015Q1

REPORT INFORMATION
  Report Type: Spontaneous
  Country: US (occurrence: US)
  Receive Date: 20150325
  Receipt Date: 20150325
  Transmission Date: 20150721
  Serious: No
  Sender: FDA-Public Use
  Company Number: US-PFIZER INC-2015101280

PATIENT

DRUGS (2)
  1. IBRANCE [Suspect]
     Active Substance: PALBOCICLIB
     Dosage: UNK
     Dates: start: 201502
  2. LETROZOLE. [Suspect]
     Active Substance: LETROZOLE
     Dosage: UNK
     Dates: start: 201502

REACTIONS (2)
  - Fatigue [Unknown]
  - Alopecia [Unknown]
